FAERS Safety Report 7326735-9 (Version None)
Quarter: 2011Q1

REPORT INFORMATION
  Report Type: 
  Country: None (occurrence: None)
  Receive Date: 20110302
  Receipt Date: 20100712
  Transmission Date: 20110831
  Serious: Yes (Hospitalization, Other)
  Sender: FDA-Public Use
  Company Number: US-PFIZER INC-2009157214

PATIENT
  Sex: Male
  Weight: 164 kg

DRUGS (4)
  1. DILANTIN [Suspect]
     Indication: CONVULSION
     Dosage: UNK
     Dates: end: 20040925
  2. ZITHROMAX [Concomitant]
  3. ROCEPHIN [Concomitant]
  4. DILANTIN [Suspect]
     Dosage: UNK

REACTIONS (2)
  - STEVENS-JOHNSON SYNDROME [None]
  - DERMATITIS EXFOLIATIVE [None]
